FAERS Safety Report 23190631 (Version 1)
Quarter: 2023Q4

REPORT INFORMATION
  Report Type: Spontaneous
  Country: CN (occurrence: CN)
  Receive Date: 20231116
  Receipt Date: 20231116
  Transmission Date: 20240110
  Serious: Yes (Hospitalization, Other)
  Sender: FDA-Public Use
  Company Number: None

PATIENT
  Age: 14 Year
  Sex: Female
  Weight: 41 kg

DRUGS (6)
  1. IFOSFAMIDE [Suspect]
     Active Substance: IFOSFAMIDE
     Indication: Rhabdomyosarcoma
     Dosage: 3 G, ONE TIME IN ONE DAY, D1-4, DILUTED WITH 500 ML OF 0.9 % SODIUM CHLORIDE
     Route: 041
     Dates: start: 20230922, end: 20230925
  2. SODIUM CHLORIDE [Suspect]
     Active Substance: SODIUM CHLORIDE
     Indication: Medication dilution
     Dosage: 500 ML, ONE TIME IN ONE DAY, D1-4, USED TO DILUTE 3 G OF IFOSFAMIDE
     Route: 041
     Dates: start: 20230922, end: 20230925
  3. SODIUM CHLORIDE [Suspect]
     Active Substance: SODIUM CHLORIDE
     Dosage: 500 ML, ONE TIME IN ONE DAY, D1-4, USED TO DILUTE 100 MG OF ETOPOSIDE
     Route: 041
     Dates: start: 20230922, end: 20230925
  4. SODIUM CHLORIDE [Suspect]
     Active Substance: SODIUM CHLORIDE
     Dosage: 500 ML, ONE TIME IN ONE DAY, D1-4, USED TO DILUTE 50 MG OF ETOPOSIDE
     Route: 041
     Dates: start: 20230922, end: 20230925
  5. ETOPOSIDE [Suspect]
     Active Substance: ETOPOSIDE
     Indication: Rhabdomyosarcoma
     Dosage: 100 MG, ONE TIME IN ONE DAY, D1-4, DILUTED WITH 500 ML OF 0.9 % SODIUM CHLORIDE
     Route: 041
     Dates: start: 20230922, end: 20230925
  6. ETOPOSIDE [Suspect]
     Active Substance: ETOPOSIDE
     Dosage: 50 MG, ONE TIME IN ONE DAY, D1-4, DILUTED WITH 500 ML OF 0.9 % SODIUM CHLORIDE
     Route: 041
     Dates: start: 20230922, end: 20231025

REACTIONS (1)
  - Liver injury [Recovering/Resolving]

NARRATIVE: CASE EVENT DATE: 20231012
